FAERS Safety Report 10243386 (Version 1)
Quarter: 2014Q2

REPORT INFORMATION
  Report Type: Spontaneous
  Country: US (occurrence: None)
  Receive Date: 20140616
  Receipt Date: 20140616
  Transmission Date: 20141212
  Serious: Yes (Life-Threatening, Hospitalization, Other)
  Sender: FDA-Public Use
  Company Number: AUR-APL-2014-06343

PATIENT
  Age: 58 Year
  Sex: Female
  Weight: 108.9 kg

DRUGS (31)
  1. PANTOPRAZOLE (PANTOPRAZOLE) [Suspect]
     Indication: PRODUCT USED FOR UNKNOWN INDICATION
     Route: 048
  2. OXYCODONE [Suspect]
     Indication: PAIN
  3. CARVEDILOL (CARVEDILOL) [Suspect]
     Indication: PRODUCT USED FOR UNKNOWN INDICATION
  4. CARISOPRODOL (CARISOPRODOL) [Suspect]
     Indication: PRODUCT USED FOR UNKNOWN INDICATION
  5. IBUPROFEN (IBUPROFEN) [Suspect]
     Indication: PRODUCT USED FOR UNKNOWN INDICATION
     Route: 048
     Dates: end: 20110924
  6. MORPHINE SULFATE [Suspect]
     Indication: PRODUCT USED FOR UNKNOWN INDICATION
     Route: 042
  7. MORPHINE SULFATE [Suspect]
     Indication: PRODUCT USED FOR UNKNOWN INDICATION
  8. MORPHINE SULFATE [Suspect]
     Indication: PRODUCT USED FOR UNKNOWN INDICATION
     Route: 037
  9. NORVASC (AMLODIPINE BESILATE) [Suspect]
     Indication: PRODUCT USED FOR UNKNOWN INDICATION
  10. DILANTIN /00017401/ [Suspect]
     Indication: NEURALGIA
     Dosage: 100 OR 200 MG
  11. DIOVAN (VALSARTAN) [Suspect]
     Indication: PRODUCT USED FOR UNKNOWN INDICATION
     Route: 048
     Dates: end: 20110928
  12. LIORESAL INTRATECAL [Suspect]
     Indication: PAIN
     Route: 037
  13. METOCLOPRAMIDE (METOCLOPRAMIDE) [Suspect]
     Indication: PRODUCT USED FOR UNKNOWN INDICATION
     Route: 042
  14. VALSARTAN (VALSARTAN) [Suspect]
     Indication: PRODUCT USED FOR UNKNOWN INDICATION
  15. PARACETAMOL (PARACETAMOL) [Suspect]
     Indication: PRODUCT USED FOR UNKNOWN INDICATION
  16. CLONAZEPAM [Suspect]
     Indication: PRODUCT USED FOR UNKNOWN INDICATION
  17. CLONIDINE HYDROCHLORIDE [Suspect]
     Indication: PRODUCT USED FOR UNKNOWN INDICATION
     Route: 048
     Dates: end: 20110928
  18. HYDROXYZINE (HYDROXYZINE) [Suspect]
     Indication: PRODUCT USED FOR UNKNOWN INDICATION
  19. ENOXAPARIN (ENOXAPARIN) [Suspect]
     Indication: PRODUCT USED FOR UNKNOWN INDICATION
     Route: 042
  20. ORPHENADRINE [Suspect]
     Indication: PRODUCT USED FOR UNKNOWN INDICATION
  21. FUROSEMIDE (FUROSEMIDE) [Suspect]
     Indication: PRODUCT USED FOR UNKNOWN INDICATION
  22. ATARAX /00058401/ (HYDROXYZINE) [Suspect]
     Indication: TREMOR
  23. COREG (CARVEDILOL) [Suspect]
     Indication: PRODUCT USED FOR UNKNOWN INDICATION
     Route: 048
     Dates: end: 20110928
  24. DILAUDID (HYDROMORPHONE HYDROCHLORIDE) [Suspect]
     Indication: PRODUCT USED FOR UNKNOWN INDICATION
     Route: 048
  25. KLONOPIN (CLONAZEPAM) (TABLETS) [Suspect]
     Indication: PRODUCT USED FOR UNKNOWN INDICATION
  26. KEFLEX /00145501/ [Suspect]
     Indication: PRODUCT USED FOR UNKNOWN INDICATION
  27. SOMA (CARISOPRODOL) [Suspect]
     Indication: PRODUCT USED FOR UNKNOWN INDICATION
  28. FENTANYL (FENTANYL) [Suspect]
     Indication: PAIN
     Dosage: 150 MCG/HR EVERY 72 HOURS
     Route: 062
  29. DURAGESIC [Suspect]
     Indication: PRODUCT USED FOR UNKNOWN INDICATION
     Dosage: 200 MICROGRAMS EVERY 72 HOURS
  30. PHENYTOIN (PHENYTOIN) [Suspect]
     Indication: PRODUCT USED FOR UNKNOWN INDICATION
  31. PHENERGAN /00033001/ [Suspect]
     Indication: PRODUCT USED FOR UNKNOWN INDICATION
     Route: 054

REACTIONS (83)
  - Throat irritation [None]
  - Intervertebral disc degeneration [None]
  - Nuclear magnetic resonance imaging abnormal [None]
  - Tooth fracture [None]
  - Post procedural haemorrhage [None]
  - Foreign body reaction [None]
  - Extradural abscess [None]
  - Wound dehiscence [None]
  - Purulent discharge [None]
  - Urinary casts [None]
  - Arthritis bacterial [None]
  - Osteomyelitis [None]
  - Allodynia [None]
  - Contusion [None]
  - Hypertensive encephalopathy [None]
  - Neuropathy peripheral [None]
  - Anxiety disorder [None]
  - Left ventricular hypertrophy [None]
  - Impaired gastric emptying [None]
  - Lumbar spinal stenosis [None]
  - Skin infection [None]
  - Influenza [None]
  - Wound infection staphylococcal [None]
  - Blood albumin decreased [None]
  - Staphylococcus test positive [None]
  - Red blood cell sedimentation rate increased [None]
  - C-reactive protein increased [None]
  - Blood calcium decreased [None]
  - Blood glucose increased [None]
  - Globulins increased [None]
  - Respiratory rate increased [None]
  - Mean cell volume decreased [None]
  - Blood potassium decreased [None]
  - Urinary tract infection [None]
  - Red blood cells urine positive [None]
  - White blood cells urine positive [None]
  - Neutrophil count increased [None]
  - Hypovolaemia [None]
  - Hyperpathia [None]
  - Spinal osteoarthritis [None]
  - Paralysis [None]
  - Obesity [None]
  - Haematocrit decreased [None]
  - Myositis [None]
  - Soft tissue infection [None]
  - Dry mouth [None]
  - Cellulitis [None]
  - Cough [None]
  - Heart rate increased [None]
  - Anaemia [None]
  - Feeling hot [None]
  - Abasia [None]
  - Dyspnoea [None]
  - Hypertensive crisis [None]
  - Hypoaesthesia [None]
  - Tremor [None]
  - Implant site hypersensitivity [None]
  - Implant site discharge [None]
  - Implant site pain [None]
  - Implant site extravasation [None]
  - Implant site infection [None]
  - Implant site abscess [None]
  - Muscle spasms [None]
  - Muscular weakness [None]
  - Neuralgia [None]
  - Pain [None]
  - Hypertension [None]
  - Pain in extremity [None]
  - Dehydration [None]
  - Convulsion [None]
  - Paraesthesia [None]
  - Meningitis [None]
  - Back pain [None]
  - Implant site mass [None]
  - Blood magnesium decreased [None]
  - No therapeutic response [None]
  - Hyponatraemia [None]
  - Malaise [None]
  - Pyrexia [None]
  - Insomnia [None]
  - Headache [None]
  - Nausea [None]
  - Vomiting [None]
